FAERS Safety Report 18266405 (Version 1)
Quarter: 2020Q3

REPORT INFORMATION
  Report Type: Spontaneous
  Country: CH (occurrence: CH)
  Receive Date: 20200915
  Receipt Date: 20200915
  Transmission Date: 20201103
  Serious: Yes (Other)
  Sender: FDA-Public Use
  Company Number: CH-AMERICAN REGENT INC-2020001872

PATIENT
  Age: 43 Year
  Sex: Female

DRUGS (2)
  1. FERINJECT [Suspect]
     Active Substance: FERRIC CARBOXYMALTOSE
     Indication: IRON DEFICIENCY
     Dosage: FIRST DOSE (500 MG,1 TOTAL)
     Dates: start: 202008, end: 202008
  2. FERINJECT [Suspect]
     Active Substance: FERRIC CARBOXYMALTOSE
     Dosage: SECOND DOSE (500 MG,1 TOTAL)
     Dates: start: 202008, end: 202008

REACTIONS (2)
  - Impaired work ability [Unknown]
  - Influenza like illness [Not Recovered/Not Resolved]

NARRATIVE: CASE EVENT DATE: 202008
